FAERS Safety Report 7005300-7 (Version None)
Quarter: 2010Q3

REPORT INFORMATION
  Report Type: 
  Country: None (occurrence: None)
  Receive Date: 20100921
  Receipt Date: 20100907
  Transmission Date: 20110219
  Serious: Yes (Other)
  Sender: FDA-Public Use
  Company Number: US-ELI_LILLY_AND_COMPANY-US201007005323

PATIENT
  Age: 70 Year
  Sex: Male
  Weight: 90.703 kg

DRUGS (3)
  1. EFFIENT [Suspect]
     Indication: ACUTE MYOCARDIAL INFARCTION
     Dosage: 60 MG, UNK
     Dates: start: 20090101, end: 20090101
  2. PLAVIX [Concomitant]
     Indication: ACUTE MYOCARDIAL INFARCTION
     Dosage: 600 MG, UNK
  3. ASPIRIN [Concomitant]
     Dosage: 325 MG, UNK

REACTIONS (5)
  - BIOPSY MUCOSA ABNORMAL [None]
  - DUODENITIS [None]
  - GASTRITIS [None]
  - GASTROINTESTINAL HAEMORRHAGE [None]
  - REFLUX OESOPHAGITIS [None]
